FAERS Safety Report 9868544 (Version 2)
Quarter: 2014Q2

REPORT INFORMATION
  Report Type: Spontaneous
  Country: IT (occurrence: IT)
  Receive Date: 20140204
  Receipt Date: 20140521
  Transmission Date: 20141212
  Serious: Yes (Other)
  Sender: FDA-Public Use
  Company Number: IT-MYLANLABS-2014S1001583

PATIENT
  Age: 16 Year
  Sex: Female

DRUGS (3)
  1. AMLODIPINE [Suspect]
     Indication: HYPERTENSION
     Dosage: 5 MG DAILY
     Route: 048
     Dates: start: 20131120, end: 20131122
  2. HYDROCHLOROTHIAZIDE W/OLMESARTAN [Suspect]
     Indication: HYPERTENSION
     Dosage: 32500 UG DAILY
     Route: 048
     Dates: start: 20131120, end: 20131122
  3. LORAZEPAM [Concomitant]
     Indication: PRODUCT USED FOR UNKNOWN INDICATION

REACTIONS (1)
  - Oral candidiasis [Recovered/Resolved]
